FAERS Safety Report 9128812 (Version 3)
Quarter: 2013Q1

REPORT INFORMATION
  Report Type: Spontaneous
  Country: FR (occurrence: FR)
  Receive Date: 20130228
  Receipt Date: 20130311
  Transmission Date: 20140127
  Serious: Yes (Hospitalization)
  Sender: FDA-Public Use
  Company Number: FR-PFIZER INC-2013068894

PATIENT
  Age: 86 Year
  Sex: Female

DRUGS (9)
  1. TAHOR [Suspect]
     Indication: PRODUCT USED FOR UNKNOWN INDICATION
     Dosage: 40 MG, 1X/DAY
     Route: 048
     Dates: end: 20121114
  2. ALDACTONE [Suspect]
     Indication: PRODUCT USED FOR UNKNOWN INDICATION
     Dosage: 12.5 MG, 1X/DAY
     Route: 048
     Dates: start: 20121108, end: 20121115
  3. CORDARONE [Suspect]
     Indication: PRODUCT USED FOR UNKNOWN INDICATION
     Dosage: 200 MG,DAILY
     Route: 048
     Dates: end: 20121113
  4. DOLIPRANE [Suspect]
     Indication: PRODUCT USED FOR UNKNOWN INDICATION
     Dosage: 1000 MG, 3X/DAY
     Route: 048
     Dates: start: 20121107, end: 20121117
  5. DIFFU K [Concomitant]
     Dosage: 1200 MG, 3X/DAY
  6. BISOCE [Concomitant]
     Dosage: 1.25 MG, 1X/DAY
  7. LASILIX SPECIAL [Concomitant]
     Dosage: 0.75 DF, 1X/DAY
  8. COUMADINE [Concomitant]
     Dosage: 2 MG, DEPENDING ON INTERNATIONAL NORMALIZED RATIO
  9. ZYLORIC [Concomitant]
     Dosage: 100 MG, 1X/DAY

REACTIONS (2)
  - Drug-induced liver injury [Recovered/Resolved]
  - Hypothyroidism [Recovered/Resolved]
